FAERS Safety Report 8106375 (Version 3)
Quarter: 2012Q4

REPORT INFORMATION
  Report Type: 
  Country: US (occurrence: US)
  Receive Date: 20110825
  Receipt Date: 20121206
  Transmission Date: 20130627
  Serious: Yes (Hospitalization)
  Sender: FDA-Public Use
  Company Number: US-BAYER-2011-075740

PATIENT
  Age: 27 Year
  Sex: Female
  Weight: 67.12 kg

DRUGS (6)
  1. YASMIN [Suspect]
     Dosage: UNK
  2. YAZ [Suspect]
     Indication: MENSTRUAL CRAMPS
     Dosage: UNK
  3. YAZ [Suspect]
     Indication: POLYCYSTIC OVARY
  4. LEXAPRO [Concomitant]
     Dosage: 10 mg versus 20 mg once daily
     Route: 048
  5. CLARITIN [Concomitant]
     Dosage: 10 mg, PRN
     Route: 048
  6. ARIXTRA [Concomitant]
     Dosage: 7.5 mg subcutaneous daily
     Route: 058

REACTIONS (2)
  - Pulmonary embolism [Recovered/Resolved]
  - Off label use [None]
